FAERS Safety Report 20580550 (Version 8)
Quarter: 2022Q3

REPORT INFORMATION
  Report Type: Report from Study
  Country: US (occurrence: US)
  Receive Date: 20220311
  Receipt Date: 20220624
  Transmission Date: 20221026
  Serious: No
  Sender: FDA-Public Use
  Company Number: US-NOVARTISTESTPH-NVSC2022US056653

PATIENT
  Age: 75 Year
  Sex: Male

DRUGS (3)
  1. ENTRESTO [Suspect]
     Active Substance: SACUBITRIL\VALSARTAN
     Indication: Cardiac failure chronic
     Dosage: UNK UNK, BID
     Route: 065
     Dates: start: 20220216
  2. ENTRESTO [Suspect]
     Active Substance: SACUBITRIL\VALSARTAN
     Dosage: UNK
     Route: 065
  3. ENTRESTO [Suspect]
     Active Substance: SACUBITRIL\VALSARTAN
     Dosage: 0.5 DOSAGE FORM, BID (49/51 MG)
     Route: 048
     Dates: start: 20220216

REACTIONS (12)
  - Hypertension [Not Recovered/Not Resolved]
  - Heart rate decreased [Not Recovered/Not Resolved]
  - Anxiety [Not Recovered/Not Resolved]
  - Rhinorrhoea [Unknown]
  - Cardiac disorder [Recovering/Resolving]
  - Malaise [Not Recovered/Not Resolved]
  - Dizziness postural [Not Recovered/Not Resolved]
  - Fatigue [Not Recovered/Not Resolved]
  - Cough [Unknown]
  - Hypersensitivity [Not Recovered/Not Resolved]
  - Hypotension [Not Recovered/Not Resolved]
  - Wrong technique in product usage process [Not Recovered/Not Resolved]

NARRATIVE: CASE EVENT DATE: 20220201
